FAERS Safety Report 15483316 (Version 1)
Quarter: 2018Q4

REPORT INFORMATION
  Report Type: Spontaneous
  Country: DE (occurrence: DE)
  Receive Date: 20181010
  Receipt Date: 20181010
  Transmission Date: 20190205
  Serious: Yes (Other)
  Sender: FDA-Public Use
  Company Number: DE-TEVA-2018-DE-962819

PATIENT
  Sex: Male

DRUGS (1)
  1. CIPROFLOXACIN. [Suspect]
     Active Substance: CIPROFLOXACIN
     Route: 065

REACTIONS (5)
  - Neuropathy peripheral [Unknown]
  - Impaired work ability [Unknown]
  - Limb discomfort [Unknown]
  - Frustration tolerance decreased [Unknown]
  - Depression [Unknown]
